FAERS Safety Report 20858924 (Version 1)
Quarter: 2022Q2

REPORT INFORMATION
  Report Type: Other
  Country: RO (occurrence: RO)
  Receive Date: 20220522
  Receipt Date: 20220522
  Transmission Date: 20220720
  Serious: Yes (Hospitalization, Other)
  Sender: FDA-Public Use
  Company Number: RO-CELLTRION INC.-2022RO006784

PATIENT

DRUGS (8)
  1. RITUXIMAB [Suspect]
     Active Substance: RITUXIMAB
     Indication: Diffuse large B-cell lymphoma
     Dosage: 375 MG/M2
     Route: 041
     Dates: start: 20220215, end: 20220221
  2. POLIVY [Suspect]
     Active Substance: POLATUZUMAB VEDOTIN-PIIQ
     Indication: Diffuse large B-cell lymphoma
     Dosage: 1.8 MG/KG
     Route: 042
     Dates: start: 20220215, end: 20220221
  3. ATORVASTATIN CALCIUM [Concomitant]
     Active Substance: ATORVASTATIN CALCIUM
     Dosage: 20 MG
  4. MODUXIN [Concomitant]
     Dosage: 35 MG
  5. TAMSULOSIN [Concomitant]
     Active Substance: TAMSULOSIN
     Dosage: 0.4 MG
  6. ASPIRIN [Concomitant]
     Active Substance: ASPIRIN
     Dosage: 100 MG
  7. OLANZAPINE [Concomitant]
     Active Substance: OLANZAPINE
     Dosage: 20 MG
  8. BENDAMUSTINE [Concomitant]
     Active Substance: BENDAMUSTINE
     Indication: Diffuse large B-cell lymphoma
     Dosage: 90 MG/M2
     Route: 042
     Dates: start: 20220215, end: 20220221

REACTIONS (8)
  - Pyrexia [Unknown]
  - Bacteriuria [Unknown]
  - Medical device site haemorrhage [Unknown]
  - Hypogammaglobulinaemia [Unknown]
  - Peripheral swelling [Unknown]
  - Night sweats [Unknown]
  - Blood fibrinogen increased [Unknown]
  - Breath sounds abnormal [Unknown]
